FAERS Safety Report 18899773 (Version 1)
Quarter: 2021Q1

REPORT INFORMATION
  Report Type: Report from Study
  Country: IT (occurrence: IT)
  Receive Date: 20210216
  Receipt Date: 20210216
  Transmission Date: 20210420
  Serious: Yes (Hospitalization)
  Sender: FDA-Public Use
  Company Number: IT-ALNYLAM PHARMACEUTICALS, INC.-ALN-2019-000049

PATIENT

DRUGS (11)
  1. CLONAZEPAM. [Concomitant]
     Active Substance: CLONAZEPAM
     Indication: INSOMNIA
     Dosage: 4 DROP, QD
     Route: 048
     Dates: start: 201607
  2. IVABRADINA [Concomitant]
     Active Substance: IVABRADINE
     Indication: CARDIAC DISORDER
     Dosage: 5 MILLIGRAM, BID
     Route: 048
     Dates: start: 20180118
  3. ONPATTRO [Suspect]
     Active Substance: PATISIRAN SODIUM
     Indication: HEREDITARY NEUROPATHIC AMYLOIDOSIS
     Dosage: 0.3 MILLIGRAM/KILOGRAM, Q3W
     Route: 042
     Dates: start: 20181219
  4. VERTIGOVAL [Concomitant]
     Indication: DIZZINESS
     Dosage: UNK UNK, BID
     Route: 048
     Dates: start: 201607
  5. PREGABALIN. [Concomitant]
     Active Substance: PREGABALIN
     Indication: PARAESTHESIA
     Dosage: 75 MILLIGRAM, BID
     Route: 048
     Dates: start: 201607
  6. VITAMIN A [Concomitant]
     Active Substance: VITAMIN A
     Indication: VITAMIN SUPPLEMENTATION
     Dosage: 2500 INTERNATIONAL UNIT, QD
     Route: 048
     Dates: start: 20181219
  7. PAROXETINE. [Concomitant]
     Active Substance: PAROXETINE
     Indication: DEPRESSION
     Dosage: 20 MILLIGRAM, QD
     Route: 048
     Dates: start: 201607
  8. ESOMEPRAZOLE. [Concomitant]
     Active Substance: ESOMEPRAZOLE MAGNESIUM
     Indication: ANTACID THERAPY
     Dosage: 40 MILLIGRAM, QD
     Route: 048
     Dates: start: 201705
  9. FIDATO [Concomitant]
     Active Substance: CEFTRIAXONE SODIUM
     Indication: HYPERLEUKOCYTOSIS
     Dosage: 1 VIAL, FOR 5 DAYS
     Route: 030
     Dates: start: 201901, end: 201901
  10. ACETYLSALICYLIC ACID [Concomitant]
     Active Substance: ASPIRIN
     Indication: CARDIOMYOPATHY
     Dosage: 100 MILLIGRAM, QD
     Route: 048
     Dates: start: 201607
  11. LEVOPRAID [Concomitant]
     Indication: VERTIGO
     Dosage: UNK
     Dates: start: 20190102, end: 20190106

REACTIONS (13)
  - Amyloidosis [Recovered/Resolved]
  - Retinal vein thrombosis [Unknown]
  - Urinary incontinence [Recovered/Resolved]
  - Visual impairment [Unknown]
  - Hypokalaemia [Unknown]
  - Neuropathy peripheral [Recovered/Resolved]
  - Cardiomyopathy [Recovered/Resolved]
  - Investigation [Recovered/Resolved]
  - Vertigo [Recovered/Resolved]
  - Vomiting [Recovered/Resolved]
  - Retinopathy [Unknown]
  - Nausea [Recovered/Resolved]
  - Neutrophil count increased [Unknown]

NARRATIVE: CASE EVENT DATE: 20190102
